FAERS Safety Report 21242096 (Version 1)
Quarter: 2022Q3

REPORT INFORMATION
  Report Type: Spontaneous
  Country: JP (occurrence: JP)
  Receive Date: 20220823
  Receipt Date: 20220823
  Transmission Date: 20221027
  Serious: Yes (Life-Threatening, Hospitalization, Other)
  Sender: FDA-Public Use
  Company Number: JP-MLMSERVICE-2022080337130361

PATIENT
  Age: 84 Year
  Sex: Male
  Weight: 89 kg

DRUGS (10)
  1. FUROSEMIDE [Suspect]
     Active Substance: FUROSEMIDE
     Indication: Product used for unknown indication
  2. AZOSEMIDE [Suspect]
     Active Substance: AZOSEMIDE
     Indication: Diuretic therapy
  3. CEFTRIAXONE [Interacting]
     Active Substance: CEFTRIAXONE
     Indication: Pneumonia
     Route: 042
  4. TAMSULOSIN [Concomitant]
     Active Substance: TAMSULOSIN
  5. REBAMIPIDE [Concomitant]
     Active Substance: REBAMIPIDE
  6. METHYLDOPA [Concomitant]
     Active Substance: METHYLDOPA
  7. CARVEDILOL [Concomitant]
     Active Substance: CARVEDILOL
  8. CILNIDIPINE [Concomitant]
     Active Substance: CILNIDIPINE
  9. TELMISARTAN [Concomitant]
     Active Substance: TELMISARTAN
  10. NIFEDIPINE [Concomitant]
     Active Substance: NIFEDIPINE

REACTIONS (4)
  - Toxic encephalopathy [Recovered/Resolved]
  - Dehydration [Unknown]
  - Antibiotic level above therapeutic [Recovered/Resolved]
  - Hepatic function abnormal [Unknown]
